FAERS Safety Report 8007451-7 (Version None)
Quarter: 2011Q4

REPORT INFORMATION
  Report Type: 
  Country: None (occurrence: None)
  Receive Date: 20111227
  Receipt Date: 20111222
  Transmission Date: 20120403
  Serious: Yes (Hospitalization, Congenital Anomaly, Other)
  Sender: FDA-Public Use
  Company Number: US-PFIZER INC-2011105709

PATIENT
  Sex: Male
  Weight: 2.6 kg

DRUGS (10)
  1. EFFEXOR XR [Suspect]
     Indication: PANIC ATTACK
     Dosage: 75 MG, UNK
     Route: 064
     Dates: start: 20040101
  2. KLONOPIN [Concomitant]
     Dosage: 1 MG, 2X/DAY
     Route: 064
  3. XANAX [Concomitant]
     Indication: PANIC ATTACK
     Dosage: 0.5 MG, 1X/DAY
     Route: 064
  4. BENADRYL [Concomitant]
     Dosage: UNK
     Route: 064
  5. EFFEXOR XR [Suspect]
     Dosage: 150 MG, DAILY
     Route: 064
     Dates: start: 20050111
  6. EFFEXOR XR [Suspect]
     Dosage: 150 MG, ALTERNATE DAY
     Route: 064
     Dates: start: 20050101, end: 20050101
  7. EFFEXOR XR [Suspect]
     Dosage: 75 MG, ALTERNATE DAY
     Route: 064
     Dates: start: 20050101, end: 20050101
  8. XANAX [Concomitant]
     Indication: INSOMNIA
     Dosage: 0.5 MG, TWICE A DAY/ AS NEEDED
     Route: 064
  9. TOPROL-XL [Concomitant]
     Dosage: UNK
     Route: 064
  10. HYDRALAZINE [Concomitant]
     Dosage: UNK
     Route: 064

REACTIONS (22)
  - FOETAL EXPOSURE DURING PREGNANCY [None]
  - RESPIRATORY DISTRESS [None]
  - PULMONARY VALVE STENOSIS [None]
  - PULMONARY VALVE INCOMPETENCE [None]
  - RESPIRATORY FAILURE [None]
  - VENTRICULAR SEPTAL DEFECT [None]
  - ANOMALOUS PULMONARY VENOUS CONNECTION [None]
  - CONGENITAL PULMONARY VALVE ATRESIA [None]
  - CARDIOMEGALY [None]
  - TRICUSPID VALVE INCOMPETENCE [None]
  - RIGHT ATRIAL DILATATION [None]
  - RIGHT VENTRICULAR HYPERTROPHY [None]
  - FALLOT'S TETRALOGY [None]
  - RESPIRATORY SYNCYTIAL VIRUS BRONCHIOLITIS [None]
  - PULMONARY VASCULAR DISORDER [None]
  - BUNDLE BRANCH BLOCK RIGHT [None]
  - CYANOSIS [None]
  - PATENT DUCTUS ARTERIOSUS [None]
  - AORTIC VALVE INCOMPETENCE [None]
  - PULMONARY VALVE STENOSIS CONGENITAL [None]
  - HYPOGLYCAEMIA NEONATAL [None]
  - ATRIAL SEPTAL DEFECT [None]
